FAERS Safety Report 23214503 (Version 1)
Quarter: 2023Q4

REPORT INFORMATION
  Report Type: Spontaneous
  Country: CN (occurrence: CN)
  Receive Date: 20231121
  Receipt Date: 20231121
  Transmission Date: 20240109
  Serious: Yes (Disabling)
  Sender: FDA-Public Use
  Company Number: CN-WOODWARD-2023-CN-000634

PATIENT
  Age: 78 Year
  Sex: Female

DRUGS (8)
  1. RABEPRAZOLE SODIUM [Suspect]
     Active Substance: RABEPRAZOLE SODIUM
     Indication: Chronic gastritis
     Dosage: 10.0 MILLIGRAM(S) (10 MILLIGRAM(S), 1 IN 1 DAY)
     Route: 048
     Dates: start: 20231013, end: 20231015
  2. ATORVASTATIN CALCIUM [Suspect]
     Active Substance: ATORVASTATIN CALCIUM
     Dosage: 20.0 MILLIGRAM(S) (20 MILLIGRAM(S), 1 IN 1 DAY)
     Route: 048
     Dates: start: 20231006, end: 20231016
  3. AMIODARONE HYDROCHLORIDE [Suspect]
     Active Substance: AMIODARONE HYDROCHLORIDE
     Dosage: 150.0 MILLIGRAM(S) (150 MILLIGRAM(S), 1 IN 1 DAY), 300.0 MILLIGRAM(S) (300 MILLIGRAM(S), 1 IN 1 DAY)
     Route: 042
     Dates: start: 20231012, end: 20231015
  4. RIVAROXABAN [Concomitant]
     Active Substance: RIVAROXABAN
     Dosage: 15.0 MILLIGRAM(S) (15 MILLIGRAM(S), 1 IN 1 DAY)
     Route: 048
     Dates: start: 20231012
  5. MOSAPRIDE CITRATE [Concomitant]
     Active Substance: MOSAPRIDE CITRATE
     Dosage: 15.0 MILLIGRAM(S) (15 MILLIGRAM(S), 1 IN 1 DAY)
     Route: 048
     Dates: start: 20231012
  6. OMEPRAZOLE SODIUM [Concomitant]
     Active Substance: OMEPRAZOLE SODIUM
     Dosage: 60.0 MILLIGRAM(S) (60 MILLIGRAM(S), 1 IN 1 DAY)
     Route: 042
     Dates: start: 20231006, end: 20231012
  7. REBAMIPIDE [Concomitant]
     Active Substance: REBAMIPIDE
     Dosage: 0.3 GRAM(S) (0.3 GRAM(S), 1 IN 1 DAY)
     Route: 048
     Dates: start: 20231006
  8. HEPARIN CALCIUM [Concomitant]
     Active Substance: HEPARIN CALCIUM
     Dosage: 4100 INTERNATIONAL UNIT(S) (4100 INTERNATIONAL UNIT(S), 1 IN 1 DAY)
     Route: 058
     Dates: start: 20231006, end: 20231010

REACTIONS (1)
  - Hepatic function abnormal [Recovered/Resolved with Sequelae]

NARRATIVE: CASE EVENT DATE: 20231014
